FAERS Safety Report 13848552 (Version 1)
Quarter: 2017Q3

REPORT INFORMATION
  Report Type: Other
  Country: IT (occurrence: IT)
  Receive Date: 20170809
  Receipt Date: 20170809
  Transmission Date: 20171127
  Serious: Yes (Hospitalization)
  Sender: FDA-Public Use
  Company Number: IT-ORCHID HEALTHCARE-2024363

PATIENT
  Age: 65 Year
  Sex: Female

DRUGS (9)
  1. DOXAZOSIN [Concomitant]
     Active Substance: DOXAZOSIN\DOXAZOSIN MESYLATE
     Route: 065
  2. AMLODIPINE [Concomitant]
     Active Substance: AMLODIPINE BESYLATE
     Route: 065
  3. RAMIPRIL. [Concomitant]
     Active Substance: RAMIPRIL
     Route: 065
  4. FUROSEMIDE. [Suspect]
     Active Substance: FUROSEMIDE
     Route: 065
  5. EZETIMIBE 10 MG + SIMVASTATIN 40 MG [Concomitant]
     Route: 065
  6. METOPROLOL. [Concomitant]
     Active Substance: METOPROLOL
     Route: 065
  7. PANTOPRAZOLE SODIUM. [Suspect]
     Active Substance: PANTOPRAZOLE SODIUM
     Indication: DUODENAL ULCER
     Route: 065
  8. GLYBURIDE 2,5 MG + PHENFORMIN 25 MG [Concomitant]
     Route: 065
  9. WARFARIN SODIUM. [Concomitant]
     Active Substance: WARFARIN SODIUM
     Route: 065

REACTIONS (6)
  - Hypomagnesaemia [Recovered/Resolved]
  - Hyperparathyroidism [Unknown]
  - Vitamin D deficiency [Unknown]
  - Epilepsy [Unknown]
  - Blood phosphorus [Unknown]
  - Hypocalcaemia [Recovered/Resolved]
